FAERS Safety Report 4668083-1 (Version None)
Quarter: 2005Q2

REPORT INFORMATION
  Report Type: 
  Country: None (occurrence: None)
  Receive Date: 20050520
  Receipt Date: 20050511
  Transmission Date: 20051028
  Serious: Yes (Death, Hospitalization)
  Sender: FDA-Public Use
  Company Number: US-MERCK-0505USA01580

PATIENT
  Age: 76 Year
  Sex: Female

DRUGS (2)
  1. PRIMAXIN [Suspect]
     Indication: UROSEPSIS
     Route: 041
  2. PRIMAXIN [Suspect]
     Route: 041

REACTIONS (5)
  - DEATH [None]
  - DRUG INEFFECTIVE [None]
  - DRUG RESISTANCE [None]
  - ESCHERICHIA INFECTION [None]
  - RENAL FAILURE CHRONIC [None]
